FAERS Safety Report 25719802 (Version 1)
Quarter: 2025Q3

REPORT INFORMATION
  Report Type: Spontaneous
  Country: GB (occurrence: GB)
  Receive Date: 20250825
  Receipt Date: 20250825
  Transmission Date: 20251020
  Serious: Yes (Life-Threatening, Other)
  Sender: TEVA
  Company Number: None

PATIENT
  Age: 33 Year
  Sex: Male
  Weight: 58 kg

DRUGS (1)
  1. PALIPERIDONE [Suspect]
     Active Substance: PALIPERIDONE
     Indication: Product used for unknown indication
     Route: 065

REACTIONS (7)
  - Restless legs syndrome [Not Recovered/Not Resolved]
  - Akathisia [Unknown]
  - Anxiety [Unknown]
  - Medication error [Unknown]
  - Confusional state [Unknown]
  - Injection site pain [Unknown]
  - Back pain [Unknown]

NARRATIVE: CASE EVENT DATE: 20230810
